FAERS Safety Report 17264890 (Version 1)
Quarter: 2020Q1

REPORT INFORMATION
  Report Type: Spontaneous
  Country: US (occurrence: US)
  Receive Date: 20200113
  Receipt Date: 20200113
  Transmission Date: 20200409
  Serious: No
  Sender: FDA-Public Use
  Company Number: US-CUMBERLAND-2020-US-000002

PATIENT
  Age: 69 Year
  Sex: Male

DRUGS (1)
  1. VAPRISOL [Suspect]
     Active Substance: CONIVAPTAN HYDROCHLORIDE

REACTIONS (1)
  - Tardive dyskinesia [Unknown]
